FAERS Safety Report 8446879-8 (Version None)
Quarter: 2012Q2

REPORT INFORMATION
  Report Type: 
  Country: None (occurrence: None)
  Receive Date: 20120613
  Receipt Date: 20120613
  Transmission Date: 20120825
  Serious: Yes (Other)
  Sender: FDA-Public Use
  Company Number: None

PATIENT
  Sex: Male
  Weight: 101.1521 kg

DRUGS (1)
  1. ADDERALL 5 [Suspect]
     Indication: ATTENTION DEFICIT/HYPERACTIVITY DISORDER
     Dates: start: 20070201

REACTIONS (2)
  - DRUG INEFFECTIVE [None]
  - ABNORMAL BEHAVIOUR [None]
